FAERS Safety Report 22943706 (Version 3)
Quarter: 2023Q4

REPORT INFORMATION
  Report Type: Report from Study
  Country: US (occurrence: US)
  Receive Date: 20230914
  Receipt Date: 20231004
  Transmission Date: 20240110
  Serious: Yes (Hospitalization)
  Sender: FDA-Public Use
  Company Number: US-ALNYLAM PHARMACEUTICALS, INC.-ALN-2023-004555

PATIENT

DRUGS (1)
  1. AMVUTTRA [Suspect]
     Active Substance: VUTRISIRAN
     Indication: Hereditary neuropathic amyloidosis
     Dosage: UNK
     Route: 065
     Dates: start: 20230602

REACTIONS (5)
  - Intervertebral disc degeneration [Unknown]
  - Therapy interrupted [Unknown]
  - Malaise [Unknown]
  - Dyspnoea [Unknown]
  - Wheezing [Unknown]

NARRATIVE: CASE EVENT DATE: 20230908
